FAERS Safety Report 8127707-7 (Version None)
Quarter: 2011Q4

REPORT INFORMATION
  Report Type: 
  Country: None (occurrence: None)
  Receive Date: 20111230
  Receipt Date: 20110906
  Transmission Date: 20120403
  Serious: Yes (Other)
  Sender: FDA-Public Use
  Company Number: 299442USA

PATIENT
  Age: 37 Year
  Sex: Female
  Weight: 88.4514 kg

DRUGS (3)
  1. DILTIAZEM HCL [Suspect]
     Indication: HYPERTENSION
     Dosage: (180 MG),ORAL
     Route: 049
     Dates: start: 20110701
  2. DILTIAZEM HCL [Suspect]
     Indication: HYPERTENSION
     Dosage: (180 MG),ORAL
     Route: 048
     Dates: start: 20110505, end: 20110525
  3. LEVOTHYROXINE SODIUM [Concomitant]

REACTIONS (1)
  - PHARYNGEAL OEDEMA [None]
